FAERS Safety Report 7221238-4 (Version None)
Quarter: 2011Q1

REPORT INFORMATION
  Report Type: 
  Country: None (occurrence: None)
  Receive Date: 20110103
  Receipt Date: 20101223
  Transmission Date: 20110831
  Serious: Yes (Life-Threatening, Hospitalization)
  Sender: FDA-Public Use
  Company Number: 2010AL002066

PATIENT
  Age: 62 Year
  Sex: Male

DRUGS (9)
  1. IBUPROFEN [Suspect]
     Indication: PAIN
     Dosage: 600 MG; PRN; PO
     Route: 048
     Dates: start: 20090701, end: 20100111
  2. EVEROLIMUS (EVEROLIMUS) [Suspect]
     Indication: RENAL CANCER
     Dosage: 10 MG; QD; PO
     Route: 048
     Dates: start: 20091117, end: 20100108
  3. OXYCONTIN [Concomitant]
  4. PANTOLOC [Concomitant]
  5. ALOPAM [Concomitant]
  6. OLMETEC (OLMESARTAN MEDOXOMIL) [Suspect]
     Indication: HYPERTENSION
     Dosage: 40 MG; QD; PO
     Route: 048
     Dates: start: 20080101, end: 20100111
  7. IMOCLONE [Concomitant]
  8. OXYCODONE HCL [Concomitant]
  9. CENTYL [Concomitant]

REACTIONS (5)
  - DRUG INTERACTION [None]
  - METABOLIC ACIDOSIS [None]
  - RENAL FAILURE [None]
  - HAEMOGLOBIN DECREASED [None]
  - HYPERKALAEMIA [None]
